FAERS Safety Report 17589350 (Version 2)
Quarter: 2021Q2

REPORT INFORMATION
  Report Type: Spontaneous
  Country: US (occurrence: US)
  Receive Date: 20200327
  Receipt Date: 20210413
  Transmission Date: 20210716
  Serious: No
  Sender: FDA-Public Use
  Company Number: US-ALLERGAN-1933318US

PATIENT
  Sex: Female

DRUGS (1)
  1. LATISSE [Suspect]
     Active Substance: BIMATOPROST
     Indication: HAIR GROWTH ABNORMAL
     Dosage: UNK UNK, QOD (EVERY OTHER NIGHT BEFORE BED)
     Route: 061

REACTIONS (3)
  - Off label use [Unknown]
  - Hair growth abnormal [Unknown]
  - Inappropriate schedule of product administration [Unknown]
